FAERS Safety Report 8485650 (Version 2)
Quarter: 2012Q4

REPORT INFORMATION
  Report Type: 
  Country: DE (occurrence: FR)
  Receive Date: 20120330
  Receipt Date: 20121227
  Transmission Date: 20130627
  Serious: Yes (Hospitalization)
  Sender: FDA-Public Use
  Company Number: FR-FRI-1000029461

PATIENT
  Age: 91 Year
  Sex: Female

DRUGS (5)
  1. MEMANTINE [Suspect]
     Dosage: 20 mg
     Route: 048
     Dates: start: 2009
  2. EUPANTOL [Suspect]
     Dosage: 1 DF
     Route: 048
     Dates: start: 20111222, end: 201201
  3. VALERIAN EXTRACT [Suspect]
     Dosage: 1 DF
     Dates: start: 20111222, end: 20120103
  4. COVERSYL [Suspect]
     Dosage: 1 DF
     Route: 048
     Dates: start: 2008
  5. CORVASAL [Suspect]
     Dosage: 4 DF
     Route: 048
     Dates: start: 2008

REACTIONS (1)
  - Pemphigoid [Recovered/Resolved]
